FAERS Safety Report 17046403 (Version 1)
Quarter: 2019Q4

REPORT INFORMATION
  Report Type: Spontaneous
  Country: US (occurrence: US)
  Receive Date: 20191119
  Receipt Date: 20191119
  Transmission Date: 20200122
  Serious: No
  Sender: FDA-Public Use
  Company Number: US-TEVA-2019-US-1139746

PATIENT
  Age: 65 Year
  Sex: Female

DRUGS (1)
  1. PROAIR RESPICLICK [Suspect]
     Active Substance: ALBUTEROL SULFATE
     Indication: ASTHMA
     Dosage: 90 MCG SINCE ONE WEEK
     Route: 055
     Dates: start: 201911

REACTIONS (3)
  - Chest discomfort [Unknown]
  - Dyspnoea [Unknown]
  - Drug ineffective [Unknown]

NARRATIVE: CASE EVENT DATE: 201911
